FAERS Safety Report 18854886 (Version 1)
Quarter: 2021Q1

REPORT INFORMATION
  Report Type: Report from Study
  Country: US (occurrence: US)
  Receive Date: 20210205
  Receipt Date: 20210205
  Transmission Date: 20210420
  Serious: Yes (Hospitalization)
  Sender: FDA-Public Use
  Company Number: US-TAIHO ONCOLOGY  INC-EU-2021-00380

PATIENT
  Age: 57 Year
  Sex: Male
  Weight: 75.73 kg

DRUGS (1)
  1. LONSURF [Suspect]
     Active Substance: TIPIRACIL HYDROCHLORIDE\TRIFLURIDINE
     Indication: COLON CANCER
     Dosage: UNKNOWN CYCLE
     Route: 048
     Dates: start: 20201015

REACTIONS (1)
  - Bile duct stent insertion [Unknown]
